FAERS Safety Report 10806282 (Version 1)
Quarter: 2015Q1

REPORT INFORMATION
  Report Type: Report from Study
  Country: US (occurrence: US)
  Receive Date: 20150217
  Receipt Date: 20150217
  Transmission Date: 20150721
  Serious: No
  Sender: FDA-Public Use
  Company Number: US-ABBVIE-14K-163-1259896-00

PATIENT
  Sex: Female

DRUGS (8)
  1. HUMIRA [Suspect]
     Active Substance: ADALIMUMAB
     Indication: PSORIASIS
     Dosage: INITIAL DOSE
     Dates: start: 201310, end: 201310
  2. ENBREL [Suspect]
     Active Substance: ETANERCEPT
     Indication: PRODUCT USED FOR UNKNOWN INDICATION
     Dates: start: 201405, end: 201406
  3. UNKNOWN STEROIDS [Suspect]
     Active Substance: UNSPECIFIED INGREDIENT
     Indication: RASH
     Dosage: SHOT AND PACK OF STEROIDS
     Dates: start: 201406
  4. KLONOPIN [Concomitant]
     Active Substance: CLONAZEPAM
     Indication: DEPRESSION
  5. HUMIRA [Suspect]
     Active Substance: ADALIMUMAB
     Dosage: ONE WEEK AFTER INITIAL DOSE
     Dates: start: 2013, end: 201405
  6. HUMIRA [Suspect]
     Active Substance: ADALIMUMAB
     Dates: start: 20140701, end: 20140701
  7. KLONOPIN [Concomitant]
     Active Substance: CLONAZEPAM
     Indication: ANXIETY
  8. HUMIRA [Suspect]
     Active Substance: ADALIMUMAB
     Dates: start: 20140708

REACTIONS (13)
  - Dermatitis contact [Recovered/Resolved]
  - Musculoskeletal discomfort [Not Recovered/Not Resolved]
  - Skin exfoliation [Not Recovered/Not Resolved]
  - Scar [Not Recovered/Not Resolved]
  - Rash [Unknown]
  - Skin warm [Unknown]
  - Joint swelling [Not Recovered/Not Resolved]
  - Drug hypersensitivity [Unknown]
  - Skin discolouration [Not Recovered/Not Resolved]
  - Joint lock [Not Recovered/Not Resolved]
  - Arthralgia [Not Recovered/Not Resolved]
  - Drug ineffective [Not Recovered/Not Resolved]
  - Local swelling [Unknown]

NARRATIVE: CASE EVENT DATE: 2014
